FAERS Safety Report 23881658 (Version 2)
Quarter: 2024Q3

REPORT INFORMATION
  Report Type: Spontaneous
  Country: US (occurrence: US)
  Receive Date: 20240521
  Receipt Date: 20240816
  Transmission Date: 20241017
  Serious: No
  Sender: SANOFI AVENTIS
  Company Number: US-SA-SAC20240517000497

PATIENT
  Age: 44 Year
  Sex: Male
  Weight: 90.71 kg

DRUGS (1)
  1. DUPIXENT [Suspect]
     Active Substance: DUPILUMAB
     Indication: Dermatitis atopic
     Dosage: 300 MG, QOW
     Route: 058
     Dates: start: 2017

REACTIONS (4)
  - Dry skin [Not Recovered/Not Resolved]
  - Tooth disorder [Unknown]
  - Ocular hyperaemia [Not Recovered/Not Resolved]
  - Hip arthroplasty [Not Recovered/Not Resolved]

NARRATIVE: CASE EVENT DATE: 20230101
